FAERS Safety Report 4951494-4 (Version None)
Quarter: 2006Q1

REPORT INFORMATION
  Report Type: 
  Country: None (occurrence: None)
  Receive Date: 20060317
  Receipt Date: 20060315
  Transmission Date: 20060701
  Serious: Yes (Hospitalization)
  Sender: FDA-Public Use
  Company Number: TCI2006A00794

PATIENT
  Age: 69 Year
  Sex: Male

DRUGS (3)
  1. LEUPROLIDE ACETATE [Suspect]
     Indication: PROSTATE CANCER
     Dosage: 3.75 MG (3.75 MG, 1 IN 28 D)
     Dates: start: 20060130, end: 20060130
  2. ASPIRIN [Suspect]
     Dosage: 100 MG (100 MG, 1 IN 1 D);
     Dates: start: 20060116
  3. CHLORMADINONE ACETATE TAB [Suspect]
     Dosage: 100 MG (50 MG, 2 IN 1D) PER ORAL
     Route: 048
     Dates: start: 20060116

REACTIONS (1)
  - HEPATITIS ACUTE [None]
